FAERS Safety Report 13065031 (Version 1)
Quarter: 2016Q4

REPORT INFORMATION
  Report Type: Spontaneous
  Country: US (occurrence: US)
  Receive Date: 20161227
  Receipt Date: 20161227
  Transmission Date: 20170207
  Serious: Yes (Hospitalization)
  Sender: FDA-Public Use
  Company Number: None

PATIENT
  Sex: Male

DRUGS (1)
  1. TEMOZOLAMIDE 100MG SANDOZ [Suspect]
     Active Substance: TEMOZOLOMIDE
     Indication: PRODUCT USED FOR UNKNOWN INDICATION
     Dosage: FREQUENCY - DAILY FOR 5 DAYS EVERY 28 DAYS
     Route: 048
     Dates: start: 20161126

REACTIONS (2)
  - Pneumonia [None]
  - Thrombosis [None]
